FAERS Safety Report 23046742 (Version 1)
Quarter: 2023Q4

REPORT INFORMATION
  Report Type: Spontaneous
  Country: US (occurrence: US)
  Receive Date: 20231009
  Receipt Date: 20231009
  Transmission Date: 20240109
  Serious: No
  Sender: FDA-Public Use
  Company Number: US-Kaleo, Inc.-2023KL000021

PATIENT
  Age: 10 Year
  Sex: Male

DRUGS (1)
  1. AUVI-Q [Suspect]
     Active Substance: EPINEPHRINE
     Indication: Anaphylactic reaction

REACTIONS (6)
  - Feeling abnormal [Unknown]
  - Abdominal pain upper [Unknown]
  - Vomiting [Recovered/Resolved]
  - Drug ineffective [Unknown]
  - Expired device used [Unknown]
  - Product temperature excursion issue [Unknown]
